FAERS Safety Report 8063514 (Version 3)
Quarter: 2013Q1

REPORT INFORMATION
  Report Type: Spontaneous
  Country: US (occurrence: US)
  Receive Date: 20110801
  Receipt Date: 20130111
  Transmission Date: 20140127
  Serious: Yes (Life-Threatening, Hospitalization)
  Sender: FDA-Public Use
  Company Number: US-ASTRAZENECA-2008UW26166

PATIENT
  Age: 63 Year
  Sex: Female
  Weight: 93 kg

DRUGS (17)
  1. SEROQUEL [Suspect]
     Indication: PSYCHOTIC DISORDER
     Route: 048
     Dates: start: 2003, end: 2011
  2. SEROQUEL [Suspect]
     Indication: BIPOLAR DISORDER
     Route: 048
     Dates: start: 2003, end: 2011
  3. SEROQUEL [Suspect]
     Indication: PSYCHOTIC DISORDER
     Route: 048
     Dates: end: 200810
  4. SEROQUEL [Suspect]
     Indication: BIPOLAR DISORDER
     Route: 048
     Dates: end: 200810
  5. SEROQUEL [Suspect]
     Indication: PSYCHOTIC DISORDER
     Route: 048
     Dates: start: 2011
  6. SEROQUEL [Suspect]
     Indication: BIPOLAR DISORDER
     Route: 048
     Dates: start: 2011
  7. SEROQUEL [Suspect]
     Indication: PSYCHOTIC DISORDER
     Route: 048
  8. SEROQUEL [Suspect]
     Indication: BIPOLAR DISORDER
     Route: 048
  9. SEROQUEL [Suspect]
     Indication: PSYCHOTIC DISORDER
     Dosage: 300MG-500MG  ORALLY DAILY
     Route: 048
  10. SEROQUEL [Suspect]
     Indication: BIPOLAR DISORDER
     Dosage: 300MG-500MG  ORALLY DAILY
     Route: 048
  11. LISINOPRIL [Suspect]
     Indication: HYPERTENSION
     Route: 048
  12. KLONOPIN [Suspect]
     Route: 048
  13. UNSPECIFIED MEDICATIONS [Suspect]
     Route: 065
  14. COGENTIN [Concomitant]
  15. BENADRYL [Concomitant]
  16. REMERON [Concomitant]
  17. DEPAKOTE [Concomitant]
     Indication: AFFECTIVE DISORDER
     Route: 048

REACTIONS (16)
  - Overdose [Unknown]
  - Suicide attempt [Unknown]
  - Mania [Unknown]
  - Hangover [Unknown]
  - Hallucination [Unknown]
  - Hyponatraemia [Unknown]
  - Hypertension [Unknown]
  - Tinnitus [Unknown]
  - Back pain [Unknown]
  - Balance disorder [Unknown]
  - Weight increased [Unknown]
  - Blood cholesterol increased [Unknown]
  - Dizziness [Not Recovered/Not Resolved]
  - Parkinson^s disease [Unknown]
  - Abnormal loss of weight [Unknown]
  - Intentional drug misuse [Unknown]
